FAERS Safety Report 5913328-0 (Version None)
Quarter: 2008Q4

REPORT INFORMATION
  Report Type: 
  Country: None (occurrence: None)
  Receive Date: 20081008
  Receipt Date: 20081008
  Transmission Date: 20090506
  Serious: Yes (Life-Threatening)
  Sender: FDA-Public Use
  Company Number: None

PATIENT
  Age: 59 Year
  Sex: Male
  Weight: 83.0083 kg

DRUGS (1)
  1. BACTRIM DS [Suspect]
     Indication: URINARY TRACT INFECTION BACTERIAL
     Dosage: ONE TAB EVERY 12 HOUS
     Dates: start: 20071011, end: 20071016

REACTIONS (2)
  - GENITAL HAEMORRHAGE [None]
  - STEVENS-JOHNSON SYNDROME [None]
